FAERS Safety Report 8622144-0 (Version None)
Quarter: 2012Q3

REPORT INFORMATION
  Report Type: 
  Country: None (occurrence: None)
  Receive Date: 20120826
  Receipt Date: 20120820
  Transmission Date: 20120928
  Serious: No
  Sender: FDA-Public Use
  Company Number: US-B.I. PHARMACEUTICALS,INC./RIDGEFIELD-2012-BP-20230BP

PATIENT
  Sex: Female

DRUGS (3)
  1. SPIRIVA [Suspect]
     Route: 055
  2. ACCOLATE [Concomitant]
     Route: 048
  3. SYMBICORT [Concomitant]
     Route: 055

REACTIONS (1)
  - DYSPNOEA [None]
